FAERS Safety Report 15710709 (Version 3)
Quarter: 2019Q3

REPORT INFORMATION
  Report Type: Spontaneous
  Country: US (occurrence: US)
  Receive Date: 20181211
  Receipt Date: 20190923
  Transmission Date: 20191004
  Serious: Yes (Hospitalization, Other)
  Sender: FDA-Public Use
  Company Number: US-SAKK-2018SA335511AA

PATIENT
  Age: 15 Year
  Sex: Female

DRUGS (2)
  1. ALDURAZYME [Suspect]
     Active Substance: LARONIDASE
     Indication: MUCOPOLYSACCHARIDOSIS
     Dosage: 31.9 MG, QW
     Route: 041
     Dates: start: 20151020
  2. ALDURAZYME [Suspect]
     Active Substance: LARONIDASE
     Dosage: UNK
     Route: 058
     Dates: start: 201811, end: 201811

REACTIONS (10)
  - Product dose omission [Unknown]
  - Pneumonia [Unknown]
  - Surgery [Unknown]
  - Peripheral swelling [Recovered/Resolved]
  - Injection site extravasation [Unknown]
  - Incorrect route of product administration [Unknown]
  - Headache [Unknown]
  - Pulmonary oedema [Unknown]
  - Dizziness [Unknown]
  - Vertigo [Unknown]

NARRATIVE: CASE EVENT DATE: 201811
